FAERS Safety Report 10681387 (Version 2)
Quarter: 2015Q1

REPORT INFORMATION
  Report Type: Spontaneous
  Country: IT (occurrence: IT)
  Receive Date: 20141230
  Receipt Date: 20150212
  Transmission Date: 20150720
  Serious: Yes (Hospitalization)
  Sender: FDA-Public Use
  Company Number: IT-PFIZER INC-2014353470

PATIENT
  Age: 63 Year
  Sex: Female

DRUGS (4)
  1. TRIATEC [Suspect]
     Active Substance: RAMIPRIL
     Indication: DRUG ABUSE
     Dosage: 42 DF, TOTAL
     Route: 048
     Dates: start: 20140303, end: 20140303
  2. MOMENTACT [Suspect]
     Active Substance: IBUPROFEN
     Indication: DRUG ABUSE
     Dosage: 24 DF, TOTAL
     Route: 048
     Dates: start: 20140303, end: 20140303
  3. FELISON [Suspect]
     Active Substance: FLURAZEPAM MONOHYDROCHLORIDE
     Indication: DRUG ABUSE
     Dosage: 45 DF, TOTAL
     Route: 048
     Dates: start: 20140303, end: 20140303
  4. ASPIRINA [Suspect]
     Active Substance: ASPIRIN
     Indication: DRUG ABUSE
     Dosage: 20 G, TOTAL
     Route: 048
     Dates: start: 20140303, end: 20140303

REACTIONS (3)
  - Coma [Unknown]
  - Drug abuse [Unknown]
  - Hyperkalaemia [Unknown]

NARRATIVE: CASE EVENT DATE: 20140303
